FAERS Safety Report 16417439 (Version 1)
Quarter: 2019Q2

REPORT INFORMATION
  Report Type: Spontaneous
  Country: AU (occurrence: AU)
  Receive Date: 20190611
  Receipt Date: 20190611
  Transmission Date: 20190711
  Serious: Yes (Hospitalization, Other)
  Sender: FDA-Public Use
  Company Number: AU-GILEAD-2019-0412499

PATIENT
  Age: 21 Year
  Sex: Male

DRUGS (6)
  1. TRIUMEQ [Suspect]
     Active Substance: ABACAVIR SULFATE\DOLUTEGRAVIR SODIUM\LAMIVUDINE
     Indication: PRODUCT USED FOR UNKNOWN INDICATION
     Dosage: UNK
     Route: 065
     Dates: start: 20181005
  2. ABACAVIR SULPHATE [Concomitant]
     Active Substance: ABACAVIR
  3. GENVOYA [Suspect]
     Active Substance: COBICISTAT\ELVITEGRAVIR\EMTRICITABINE\TENOFOVIR ALAFENAMIDE FUMARATE
     Indication: PRODUCT USED FOR UNKNOWN INDICATION
     Dosage: UNK
     Route: 065
     Dates: start: 20181022
  4. DOLUTEGRAVIR [Concomitant]
     Active Substance: DOLUTEGRAVIR
  5. ACYCLOVIR. [Suspect]
     Active Substance: ACYCLOVIR
     Indication: ANOGENITAL WARTS
     Route: 065
  6. PENTAMIDINE [Concomitant]
     Active Substance: PENTAMIDINE

REACTIONS (5)
  - Anogenital warts [Unknown]
  - Rectal haemorrhage [Unknown]
  - Drug resistance [Unknown]
  - Rash [Unknown]
  - Drug ineffective [Unknown]
